FAERS Safety Report 11533976 (Version 1)
Quarter: 2015Q3

REPORT INFORMATION
  Report Type: Spontaneous
  Country: CA (occurrence: CA)
  Receive Date: 20150922
  Receipt Date: 20150922
  Transmission Date: 20151125
  Serious: Yes (Other)
  Sender: FDA-Public Use
  Company Number: CA-PFIZER INC-2015304987

PATIENT
  Age: 34 Year
  Sex: Female

DRUGS (4)
  1. PROCYTOX [Suspect]
     Active Substance: CYCLOPHOSPHAMIDE
     Indication: BORDERLINE SEROUS TUMOUR OF OVARY
     Dosage: 200 MG/VIAL
     Route: 042
  2. CARBOPLATIN. [Suspect]
     Active Substance: CARBOPLATIN
     Indication: BORDERLINE SEROUS TUMOUR OF OVARY
     Route: 042
  3. DOXORUBICIN HCL [Suspect]
     Active Substance: DOXORUBICIN HYDROCHLORIDE
     Indication: BORDERLINE SEROUS TUMOUR OF OVARY
     Route: 065
  4. CISPLATIN. [Suspect]
     Active Substance: CISPLATIN
     Indication: BORDERLINE SEROUS TUMOUR OF OVARY
     Route: 042

REACTIONS (6)
  - Gastrointestinal toxicity [Recovered/Resolved]
  - Disease progression [Recovered/Resolved]
  - Hydronephrosis [Recovered/Resolved]
  - Borderline serous tumour of ovary [Recovered/Resolved]
  - Bladder perforation [Recovered/Resolved]
  - Disease recurrence [Recovered/Resolved]
